FAERS Safety Report 15656328 (Version 3)
Quarter: 2019Q1

REPORT INFORMATION
  Report Type: Spontaneous
  Country: US (occurrence: US)
  Receive Date: 20181126
  Receipt Date: 20190103
  Transmission Date: 20190417
  Serious: No
  Sender: FDA-Public Use
  Company Number: US-CELGENEUS-USA-20181106610

PATIENT
  Sex: Male

DRUGS (2)
  1. REVLIMID [Suspect]
     Active Substance: LENALIDOMIDE
     Indication: MYOCARDIAL INFARCTION
     Dosage: 5 MILLIGRAM
     Route: 048
     Dates: start: 201807
  2. REVLIMID [Suspect]
     Active Substance: LENALIDOMIDE
     Indication: 5Q MINUS SYNDROME
     Dosage: 10 MILLIGRAM
     Route: 048
     Dates: start: 20180222

REACTIONS (2)
  - Laboratory test abnormal [Unknown]
  - Unevaluable event [Unknown]

NARRATIVE: CASE EVENT DATE: 2018
